FAERS Safety Report 8523920-5 (Version None)
Quarter: 2012Q3

REPORT INFORMATION
  Report Type: 
  Country: None (occurrence: None)
  Receive Date: 20120720
  Receipt Date: 20120712
  Transmission Date: 20120928
  Serious: Yes (Life-Threatening, Hospitalization)
  Sender: FDA-Public Use
  Company Number: FR-BRISTOL-MYERS SQUIBB COMPANY-16765349

PATIENT
  Age: 50 Year
  Sex: Female

DRUGS (6)
  1. IRBESARTAN AND HYDROCHLOROTHIAZIDE [Suspect]
     Indication: HYPERTENSION
     Dosage: 1 TABLET,COAPROVEL (IRBESARTAN 300 MG, HYDROCHLOROTHIAZIDE 12,5 MG)
     Route: 048
     Dates: end: 20120329
  2. METFORMIN HCL [Suspect]
     Indication: TYPE 2 DIABETES MELLITUS
     Dosage: DOSE:850(UNITS NO.S)
     Route: 048
     Dates: end: 20120329
  3. PROPRANOLOL [Concomitant]
     Dosage: DOSE:40(UNITS NO.S).1/2 TABLET DAILY IN THE MORNING
  4. PRAXILENE [Concomitant]
     Dosage: DOSE:200(UNITS NOS),2 TABLETS DAILY
  5. LERCANIDIPINE [Concomitant]
     Dosage: 1DF=20(UNITS NOS).1 TABLET DAILY IN THE EVENING
  6. LEXOMIL [Concomitant]
     Dosage: DOSE:0.5 TO 1 TABLET DAILY

REACTIONS (3)
  - RENAL FAILURE ACUTE [None]
  - LACTIC ACIDOSIS [None]
  - COMA [None]
